FAERS Safety Report 20050990 (Version 2)
Quarter: 2021Q4

REPORT INFORMATION
  Report Type: Spontaneous
  Country: KY (occurrence: None)
  Receive Date: 20211110
  Receipt Date: 20211125
  Transmission Date: 20220303
  Serious: Yes (Other)
  Sender: FDA-Public Use
  Company Number: KY-ROCHE-2948212

PATIENT
  Age: 69 Year
  Sex: Male

DRUGS (8)
  1. GAVRETO [Suspect]
     Active Substance: PRALSETINIB
     Indication: Lung cancer metastatic
     Route: 048
     Dates: start: 202107
  2. DIAZEPAM [Concomitant]
     Active Substance: DIAZEPAM
     Dosage: AT NIGHT
  3. PHENOBARBITAL [Concomitant]
     Active Substance: PHENOBARBITAL
  4. PHENYTOIN [Concomitant]
     Active Substance: PHENYTOIN
     Dosage: 200 MG AT THE MORNING.
  5. PHENYTOIN [Concomitant]
     Active Substance: PHENYTOIN
  6. IBUPROFEN [Concomitant]
     Active Substance: IBUPROFEN
     Dosage: WHEN NEEDED
  7. NORFLEX [Concomitant]
     Active Substance: ORPHENADRINE CITRATE
     Dosage: WHEN NEEDED
  8. BUTYLSCOPOLAMINE BROMIDE [Concomitant]
     Active Substance: BUTYLSCOPOLAMINE BROMIDE
     Dosage: WHEN NEEDED

REACTIONS (4)
  - Disease progression [Unknown]
  - Drug ineffective [Unknown]
  - Hepatic enzyme abnormal [Unknown]
  - Asthenia [Unknown]

NARRATIVE: CASE EVENT DATE: 20211015
